FAERS Safety Report 5122695-X (Version None)
Quarter: 2006Q4

REPORT INFORMATION
  Report Type: 
  Country: None (occurrence: None)
  Receive Date: 20061004
  Receipt Date: 20060925
  Transmission Date: 20070319
  Serious: Yes (Hospitalization)
  Sender: FDA-Public Use
  Company Number: TCI2005A04396

PATIENT
  Age: 79 Year
  Sex: Male

DRUGS (5)
  1. ACTOS [Suspect]
     Indication: DIABETES MELLITUS
     Dosage: 30 MG (30 MG, 1 D) PER ORAL
     Route: 048
     Dates: start: 20050101, end: 20051023
  2. SULFONAMIDES, UREA DERIVATIVES [Concomitant]
  3. DIOVAN [Concomitant]
  4. OTHER HORMONE PREPARATIONS (INCLUDING ANTIHORMON PREPARATIONS) [Concomitant]
  5. DEPAS (ETIZOLAM) [Concomitant]

REACTIONS (1)
  - BRADYCARDIA [None]
